FAERS Safety Report 13076924 (Version 3)
Quarter: 2017Q2

REPORT INFORMATION
  Report Type: Spontaneous
  Country: BR (occurrence: BR)
  Receive Date: 20161230
  Receipt Date: 20170421
  Transmission Date: 20170830
  Serious: Yes (Other)
  Sender: FDA-Public Use
  Company Number: BR-PFIZER INC-2014278778

PATIENT
  Age: 66 Year
  Sex: Female
  Weight: 62 kg

DRUGS (8)
  1. OMEPRAZOLE. [Concomitant]
     Active Substance: OMEPRAZOLE
     Indication: ABDOMINAL DISCOMFORT
     Dosage: 1 DF, DAILY (TABLET)
     Dates: start: 2010
  2. OSTEONUTRI [Concomitant]
     Dosage: UNK
     Dates: start: 2010
  3. XALATAN [Suspect]
     Active Substance: LATANOPROST
     Indication: GLAUCOMA
     Dosage: 1 GTT , 1X/DAY
     Route: 047
     Dates: start: 2008
  4. VITALUX /00322001/ [Concomitant]
  5. MOTILIUM ^JANSSEN^ [Concomitant]
     Indication: GASTROOESOPHAGEAL REFLUX DISEASE
     Dosage: 2 DF, DAILY (TABLETS)
     Dates: start: 2011
  6. XALATAN [Suspect]
     Active Substance: LATANOPROST
     Dosage: 1 GTT , 1XDAY
     Route: 047
     Dates: end: 20170209
  7. GINKGO BILOBA [Concomitant]
     Active Substance: GINKGO
  8. ZINPASS [Concomitant]
     Dosage: UNK
     Dates: start: 2010

REACTIONS (4)
  - Cataract [Recovered/Resolved]
  - Glaucoma [Not Recovered/Not Resolved]
  - Condition aggravated [Not Recovered/Not Resolved]
  - Incorrect product storage [Unknown]

NARRATIVE: CASE EVENT DATE: 201612
